FAERS Safety Report 25128610 (Version 1)
Quarter: 2025Q1

REPORT INFORMATION
  Report Type: Other
  Country: CN (occurrence: CN)
  Receive Date: 20250327
  Receipt Date: 20250327
  Transmission Date: 20250409
  Serious: Yes (Death, Hospitalization, Other)
  Sender: ANI
  Company Number: CN-ANIPHARMA-016142

PATIENT
  Age: 70 Year
  Sex: Female

DRUGS (4)
  1. CLOPIDOGREL BISULFATE [Suspect]
     Active Substance: CLOPIDOGREL BISULFATE
     Indication: Antiplatelet therapy
     Route: 048
  2. DAPTOMYCIN [Concomitant]
     Active Substance: DAPTOMYCIN
     Indication: Prosthetic valve endocarditis
  3. AMPICILLIN [Concomitant]
     Active Substance: AMPICILLIN
     Indication: Prosthetic valve endocarditis
  4. WARFARIN [Concomitant]
     Active Substance: WARFARIN
     Indication: Anticoagulant therapy
     Route: 048

REACTIONS (2)
  - Drug ineffective [Fatal]
  - Renal injury [Fatal]
